FAERS Safety Report 6219654-2 (Version None)
Quarter: 2009Q2

REPORT INFORMATION
  Report Type: 
  Country: None (occurrence: None)
  Receive Date: 20090609
  Receipt Date: 20090526
  Transmission Date: 20091009
  Serious: Yes (Death, Hospitalization)
  Sender: FDA-Public Use
  Company Number: DE-BAYER-200921971GPV

PATIENT
  Age: 78 Year
  Sex: Male
  Weight: 58 kg

DRUGS (15)
  1. CIPROBAY [Suspect]
     Indication: EPIDIDYMITIS
     Dosage: UNIT DOSE: 250 MG
     Route: 048
     Dates: start: 20080612, end: 20080710
  2. AVELOX [Suspect]
     Indication: PNEUMONIA
     Dosage: UNIT DOSE: 400 MG
     Route: 048
     Dates: start: 20080701, end: 20080710
  3. CEFTRIAXONE [Suspect]
     Indication: PNEUMONIA
     Dosage: NOS
     Route: 042
     Dates: start: 20080718, end: 20080722
  4. ASPIRIN [Concomitant]
     Indication: ISCHAEMIC HEART DISEASE PROPHYLAXIS
     Dosage: UNIT DOSE: 100 MG
     Route: 048
     Dates: end: 20080726
  5. DIGITOXIN [Concomitant]
     Indication: DRUG USE FOR UNKNOWN INDICATION
     Dosage: UNIT DOSE: 0.07 MG
     Route: 048
  6. ENALAGAMMA [Concomitant]
     Indication: HYPERTENSION
     Dosage: UNIT DOSE: 20 MG
     Route: 048
     Dates: end: 20080805
  7. FURORESE [Concomitant]
     Indication: OEDEMA
     Dosage: UNIT DOSE: 20 MG
     Route: 048
     Dates: end: 20080726
  8. GLEEVEC [Concomitant]
     Indication: CHRONIC MYELOID LEUKAEMIA
     Dosage: UNIT DOSE: 400 MG
     Route: 048
     Dates: start: 20040101, end: 20080730
  9. NOVAMINSULFON [Concomitant]
     Indication: PLEURISY
     Dosage: UNIT DOSE: 750 MG
     Route: 048
     Dates: start: 20080711, end: 20080726
  10. NOVONORM [Concomitant]
     Indication: TYPE 2 DIABETES MELLITUS
     Dosage: UNIT DOSE: 1 MG
     Route: 048
  11. SYMBICORT TURBOHALER ^DRACO^ [Concomitant]
     Indication: CHRONIC OBSTRUCTIVE PULMONARY DISEASE
     Dosage: UNIT DOSE: 1 DF
     Route: 055
  12. TORSEMIDE [Concomitant]
     Indication: HYPERTENSION
     Dosage: UNIT DOSE: 10 MG
     Route: 048
  13. PRIMAXIN [Concomitant]
     Indication: CYSTITIS
     Dosage: UNIT DOSE: 500 MG
     Route: 042
     Dates: start: 20080901, end: 20080907
  14. PANTOPRAZOLE SODIUM [Concomitant]
     Indication: PROPHYLAXIS AGAINST GASTROINTESTINAL ULCER
     Route: 048
     Dates: start: 20080712, end: 20080726
  15. HUMAN ALBUMIN 20% [Concomitant]
     Indication: PROTEIN TOTAL DECREASED
     Route: 042

REACTIONS (7)
  - ABDOMINAL PAIN [None]
  - DEHYDRATION [None]
  - DIARRHOEA [None]
  - NEPHROTIC SYNDROME [None]
  - PSEUDOMEMBRANOUS COLITIS [None]
  - RENAL FAILURE ACUTE [None]
  - WEIGHT DECREASED [None]
